FAERS Safety Report 7296586-2 (Version None)
Quarter: 2011Q1

REPORT INFORMATION
  Report Type: 
  Country: None (occurrence: None)
  Receive Date: 20110216
  Receipt Date: 20110207
  Transmission Date: 20110831
  Serious: Yes (Life-Threatening, Hospitalization, Other)
  Sender: FDA-Public Use
  Company Number: PHHY2010US61852

PATIENT
  Sex: Female

DRUGS (13)
  1. RECLAST [Suspect]
     Indication: OSTEOPOROSIS
     Dosage: 5 MG, UNK
     Dates: start: 20100824
  2. LOTREL [Concomitant]
     Indication: HYPERTENSION
     Dosage: 50 DF, BID
  3. CRESTOR [Concomitant]
     Indication: HYPERLIPIDAEMIA
     Dosage: 40 MG, QD
  4. HYDROCHLOROTHIAZIDE [Concomitant]
     Indication: HYPERTENSION
     Dosage: 12.5 MG, QD
  5. ASCORBIC ACID [Concomitant]
     Dosage: 500 MG, BID
  6. LEVOXYL [Concomitant]
     Indication: HYPOTHYROIDISM
     Dosage: 5 MG, QD
  7. VITAMIN B-12 [Concomitant]
     Dosage: 500 MG, QD
  8. PROZAC [Concomitant]
     Indication: GASTROOESOPHAGEAL REFLUX DISEASE
     Dosage: 20 MG, QD
  9. ZANTAC [Concomitant]
     Indication: GASTROOESOPHAGEAL REFLUX DISEASE
     Dosage: 150 MG, QD
  10. PLAVIX [Concomitant]
     Dosage: 5 MG, QD
  11. METFORMIN [Concomitant]
     Indication: DIABETES MELLITUS
     Dosage: 500 MG, BID
  12. METOPROLOL [Concomitant]
     Indication: HYPERTENSION
     Dosage: 50 MG, BID
     Route: 048
  13. CALCIFEDIOL [Concomitant]
     Indication: OSTEOPOROSIS
     Dosage: 5000

REACTIONS (12)
  - URINE OUTPUT DECREASED [None]
  - DECREASED APPETITE [None]
  - RENAL FAILURE ACUTE [None]
  - WHITE BLOOD CELL COUNT INCREASED [None]
  - LETHARGY [None]
  - BLOOD GLUCOSE INCREASED [None]
  - PYREXIA [None]
  - NAUSEA [None]
  - FLUID OVERLOAD [None]
  - RENAL FAILURE [None]
  - DEHYDRATION [None]
  - MALAISE [None]
